FAERS Safety Report 20304625 (Version 1)
Quarter: 2022Q1

REPORT INFORMATION
  Report Type: Spontaneous
  Country: US (occurrence: None)
  Receive Date: 20220105
  Receipt Date: 20220105
  Transmission Date: 20220423
  Serious: Yes (Other)
  Sender: FDA-Public Use
  Company Number: None

PATIENT
  Age: 62 Year
  Sex: Female
  Weight: 90.72 kg

DRUGS (79)
  1. JARDIANCE [Suspect]
     Active Substance: EMPAGLIFLOZIN
     Indication: Cardiac failure chronic
     Dosage: OTHER QUANTITY : 1 TABLET(S);?
     Route: 048
     Dates: start: 20211206, end: 20211231
  2. Quilipta [Concomitant]
  3. AMERGE [Concomitant]
     Active Substance: NARATRIPTAN HYDROCHLORIDE
  4. SUMATRIPTAN [Concomitant]
     Active Substance: SUMATRIPTAN
  5. OXYCODONE [Concomitant]
     Active Substance: OXYCODONE
  6. LOSARTAN [Concomitant]
     Active Substance: LOSARTAN
  7. BENTYL [Concomitant]
     Active Substance: DICYCLOMINE HYDROCHLORIDE
  8. TIZANIDINE [Concomitant]
     Active Substance: TIZANIDINE
  9. BUMEX [Concomitant]
     Active Substance: BUMETANIDE
  10. SAVELLA [Concomitant]
     Active Substance: MILNACIPRAN HYDROCHLORIDE
  11. IPRATROPIUM [Concomitant]
     Active Substance: IPRATROPIUM
  12. FLONASE [Concomitant]
     Active Substance: FLUTICASONE PROPIONATE
  13. CLONAZEPAM [Concomitant]
     Active Substance: CLONAZEPAM
  14. Dihydroergotamine nasal spray [Concomitant]
  15. KETAMINE [Concomitant]
     Active Substance: KETAMINE
  16. ZOFRAN [Concomitant]
     Active Substance: ONDANSETRON HYDROCHLORIDE
  17. PROMETHAZINE [Concomitant]
     Active Substance: PROMETHAZINE HYDROCHLORIDE
  18. LUNESTA [Concomitant]
     Active Substance: ESZOPICLONE
  19. SPIRONOLACTONE [Concomitant]
     Active Substance: SPIRONOLACTONE
  20. LIPITOR [Concomitant]
     Active Substance: ATORVASTATIN CALCIUM
  21. TRAZODONE [Concomitant]
     Active Substance: TRAZODONE HYDROCHLORIDE
  22. SINGULAIR [Concomitant]
     Active Substance: MONTELUKAST SODIUM
  23. REQUIP [Concomitant]
     Active Substance: ROPINIROLE HYDROCHLORIDE
  24. XARELTO [Concomitant]
     Active Substance: RIVAROXABAN
  25. Cefaly [Concomitant]
  26. DEXILANT [Concomitant]
     Active Substance: DEXLANSOPRAZOLE
  27. TOPROL XL [Concomitant]
     Active Substance: METOPROLOL SUCCINATE
  28. LIDOCAINE VISCOUS [Concomitant]
     Active Substance: LIDOCAINE HYDROCHLORIDE
  29. ALBUTEROL [Concomitant]
     Active Substance: ALBUTEROL
  30. ANORO ELLIPTA [Concomitant]
     Active Substance: UMECLIDINIUM BROMIDE\VILANTEROL TRIFENATATE
  31. XIIDRA [Concomitant]
     Active Substance: LIFITEGRAST
  32. Dukes magic mouthwash [Concomitant]
  33. MODAFINIL [Concomitant]
     Active Substance: MODAFINIL
  34. BOTOX [Concomitant]
     Active Substance: ONABOTULINUMTOXINA
  35. Compound Cream w/Ketamine [Concomitant]
  36. LIDOCAINE [Concomitant]
     Active Substance: LIDOCAINE
  37. GABAPENTIN [Concomitant]
     Active Substance: GABAPENTIN
  38. AMITRIPTYLINE [Concomitant]
     Active Substance: AMITRIPTYLINE
  39. DESONIDE [Concomitant]
     Active Substance: DESONIDE
  40. VOLTAREN [Concomitant]
     Active Substance: DICLOFENAC SODIUM
  41. CAMBIA [Concomitant]
     Active Substance: DICLOFENAC POTASSIUM
  42. MEXITIL [Concomitant]
     Active Substance: MEXILETINE HYDROCHLORIDE
  43. MUPIROCIN [Concomitant]
     Active Substance: MUPIROCIN
  44. NURTEC ODT [Concomitant]
     Active Substance: RIMEGEPANT SULFATE
  45. Nystatin-Triamcinolone [Concomitant]
  46. PREMARIN VAGINAL [Concomitant]
     Active Substance: ESTROGENS, CONJUGATED
  47. RHOFADE [Concomitant]
     Active Substance: OXYMETAZOLINE HYDROCHLORIDE
  48. SPRIX [Concomitant]
     Active Substance: KETOROLAC TROMETHAMINE
  49. VALTREX [Concomitant]
     Active Substance: VALACYCLOVIR HYDROCHLORIDE
  50. TYLENOL [Concomitant]
     Active Substance: ACETAMINOPHEN
  51. MAGNESIUM CITRATE [Concomitant]
     Active Substance: MAGNESIUM CITRATE
  52. MIRALAX [Concomitant]
     Active Substance: POLYETHYLENE GLYCOL 3350
  53. MAGNESIUM GLYCINATE [Concomitant]
     Active Substance: MAGNESIUM GLYCINATE
  54. Sennokot [Concomitant]
  55. COENZYME Q10 [Concomitant]
     Active Substance: DIETARY SUPPLEMENT\UBIDECARENONE
  56. DIETARY SUPPLEMENT [Concomitant]
     Active Substance: DIETARY SUPPLEMENT
  57. VITAMIN D3 [Concomitant]
     Active Substance: CHOLECALCIFEROL
  58. VITAMIN C [Concomitant]
     Active Substance: ASCORBIC ACID
  59. COLACE [Concomitant]
     Active Substance: DOCUSATE SODIUM
  60. FIBERCON [Concomitant]
     Active Substance: CALCIUM POLYCARBOPHIL
  61. FISH OIL [Concomitant]
     Active Substance: FISH OIL
  62. CHONDROITIN SULFATE (BOVINE)\GLUCOSAMINE HYDROCHLORIDE [Concomitant]
     Active Substance: CHONDROITIN SULFATE (BOVINE)\GLUCOSAMINE HYDROCHLORIDE
  63. Astragalus [Concomitant]
  64. LECITHIN [Concomitant]
     Active Substance: LECITHIN
  65. CALCIUM CITRATE [Concomitant]
     Active Substance: CALCIUM CITRATE
  66. ALLEGRA [Concomitant]
     Active Substance: FEXOFENADINE HYDROCHLORIDE
  67. MUCINEX [Concomitant]
     Active Substance: GUAIFENESIN
  68. MYLANTA [Concomitant]
     Active Substance: ALUMINUM HYDROXIDE\DIMETHICONE\MAGNESIUM HYDROXIDE
  69. Oradell [Concomitant]
  70. THERATEARS [Concomitant]
     Active Substance: CARBOXYMETHYLCELLULOSE SODIUM
  71. DELSYM [Concomitant]
     Active Substance: DEXTROMETHORPHAN
  72. PEPCID [Concomitant]
     Active Substance: FAMOTIDINE
  73. BENADRYL [Concomitant]
     Active Substance: DIPHENHYDRAMINE HYDROCHLORIDE
  74. IB guard [Concomitant]
  75. LACTASE [Concomitant]
     Active Substance: LACTASE
  76. LOPERAMIDE [Concomitant]
     Active Substance: LOPERAMIDE
  77. MELATONIN [Concomitant]
     Active Substance: MELATONIN
  78. TUMS [Concomitant]
     Active Substance: CALCIUM CARBONATE
  79. VITAMINS [Concomitant]
     Active Substance: VITAMINS

REACTIONS (6)
  - Rash erythematous [None]
  - Pruritus [None]
  - Headache [None]
  - Nausea [None]
  - Product formulation issue [None]
  - Drug hypersensitivity [None]

NARRATIVE: CASE EVENT DATE: 20211229
